FAERS Safety Report 8614084-8 (Version None)
Quarter: 2012Q3

REPORT INFORMATION
  Report Type: 
  Country: None (occurrence: None)
  Receive Date: 20120823
  Receipt Date: 20120810
  Transmission Date: 20120928
  Serious: Yes (Hospitalization, Disabling, Other)
  Sender: FDA-Public Use
  Company Number: US-009507513-1205USA02843

PATIENT

DRUGS (6)
  1. LANTUS [Concomitant]
     Indication: DIABETES MELLITUS
  2. FOSAMAX [Suspect]
     Indication: OSTEOPOROSIS
     Dosage: 70 MG, QW
     Route: 048
     Dates: start: 19990101
  3. HUMALOG [Concomitant]
     Indication: DIABETES MELLITUS
     Dosage: 0-2 UNITS, BID
  4. VITAMINS (UNSPECIFIED) [Concomitant]
  5. INSULIN [Concomitant]
     Indication: DIABETES MELLITUS
  6. HUMULIN N [Concomitant]
     Indication: DIABETES MELLITUS
     Dosage: 10-20 UNITS, BID

REACTIONS (35)
  - OSTEOPOROSIS [None]
  - CEREBROVASCULAR ACCIDENT [None]
  - CEREBRAL HAEMORRHAGE [None]
  - HYPOTENSION [None]
  - OSTEOARTHRITIS [None]
  - FALL [None]
  - TRANSIENT ISCHAEMIC ATTACK [None]
  - VASCULAR CALCIFICATION [None]
  - COUGH [None]
  - GAIT DISTURBANCE [None]
  - EYE LASER SURGERY [None]
  - DUODENAL ULCER HAEMORRHAGE [None]
  - UTERINE DILATION AND CURETTAGE [None]
  - TIBIA FRACTURE [None]
  - SINUS TACHYCARDIA [None]
  - BACK PAIN [None]
  - STRESS FRACTURE [None]
  - LOW TURNOVER OSTEOPATHY [None]
  - NERVOUS SYSTEM DISORDER [None]
  - NECK SURGERY [None]
  - HYPERCHOLESTEROLAEMIA [None]
  - SEDATION [None]
  - UPPER RESPIRATORY TRACT INFECTION [None]
  - EPILEPSY [None]
  - PEPTIC ULCER [None]
  - JOINT INJURY [None]
  - NECK PAIN [None]
  - FEMUR FRACTURE [None]
  - ANAEMIA [None]
  - DEPRESSION [None]
  - HYPERTENSION [None]
  - COAGULOPATHY [None]
  - GASTRITIS [None]
  - TACHYCARDIA [None]
  - WRIST FRACTURE [None]
